FAERS Safety Report 9310851 (Version 1)
Quarter: 2013Q2

REPORT INFORMATION
  Report Type: Spontaneous
  Country: DE (occurrence: DE)
  Receive Date: 20130528
  Receipt Date: 20130528
  Transmission Date: 20140414
  Serious: Yes (Other)
  Sender: FDA-Public Use
  Company Number: DE-RANBAXY-2013RR-69348

PATIENT
  Age: 39 Year
  Sex: Male
  Weight: 64 kg

DRUGS (1)
  1. SERTRALIN [Suspect]
     Indication: INSOMNIA
     Dosage: 1 X 1/2
     Route: 065

REACTIONS (2)
  - Coagulopathy [Not Recovered/Not Resolved]
  - Impaired healing [Not Recovered/Not Resolved]
